FAERS Safety Report 17727836 (Version 11)
Quarter: 2023Q4

REPORT INFORMATION
  Report Type: Spontaneous
  Country: US (occurrence: US)
  Receive Date: 20200430
  Receipt Date: 20231128
  Transmission Date: 20240110
  Serious: Yes (Other)
  Sender: FDA-Public Use
  Company Number: US-PFIZER INC-2020173254

PATIENT
  Age: 85 Year
  Sex: Female

DRUGS (1)
  1. XALKORI [Suspect]
     Active Substance: CRIZOTINIB
     Dosage: 200 MG, 2X/DAY

REACTIONS (4)
  - Deafness [Unknown]
  - Mental disorder [Not Recovered/Not Resolved]
  - Hypoacusis [Unknown]
  - Neoplasm progression [Unknown]
